FAERS Safety Report 6738565-7 (Version None)
Quarter: 2010Q2

REPORT INFORMATION
  Report Type: 
  Country: None (occurrence: None)
  Receive Date: 20100524
  Receipt Date: 20100517
  Transmission Date: 20101027
  Serious: Yes (Hospitalization)
  Sender: FDA-Public Use
  Company Number: FR-PFIZER INC-2010061308

PATIENT
  Age: 50 Year
  Sex: Male

DRUGS (2)
  1. ZOLOFT [Suspect]
     Indication: DEPRESSION
     Dosage: 100 MG, UNK
     Route: 048
     Dates: start: 20091121, end: 20091123
  2. TIMOLOL [Concomitant]
     Indication: OPEN ANGLE GLAUCOMA
     Dosage: 1 DROP
     Route: 047

REACTIONS (1)
  - CONDITION AGGRAVATED [None]
